FAERS Safety Report 5495545-X (Version None)
Quarter: 2007Q4

REPORT INFORMATION
  Report Type: 
  Country: None (occurrence: None)
  Receive Date: 20071015
  Receipt Date: 20061130
  Transmission Date: 20080405
  Serious: Yes (Other)
  Sender: FDA-Public Use
  Company Number: S06-USA-05039-01

PATIENT
  Age: 39 Year
  Sex: Male

DRUGS (2)
  1. LEXAPRO [Suspect]
     Indication: DEPRESSION
     Dosage: 20  MG QD PO
     Route: 048
     Dates: start: 20060601, end: 20060101
  2. ALCOHOL [Suspect]
     Dates: start: 20060901

REACTIONS (1)
  - LOSS OF CONSCIOUSNESS [None]
